FAERS Safety Report 7605665-9 (Version None)
Quarter: 2011Q3

REPORT INFORMATION
  Report Type: 
  Country: None (occurrence: None)
  Receive Date: 20110712
  Receipt Date: 20110712
  Transmission Date: 20111222
  Serious: No
  Sender: FDA-Public Use
  Company Number: None

PATIENT
  Age: 65 Year
  Sex: Male
  Weight: 69.5 kg

DRUGS (1)
  1. RITUXIMAB [Suspect]
     Dosage: 760 MG OTHER IV
     Route: 042
     Dates: start: 20110517

REACTIONS (1)
  - INFUSION RELATED REACTION [None]
